FAERS Safety Report 5193486-9 (Version None)
Quarter: 2006Q4

REPORT INFORMATION
  Report Type: 
  Country: None (occurrence: None)
  Receive Date: 20061228
  Receipt Date: 20060530
  Transmission Date: 20070319
  Serious: No
  Sender: FDA-Public Use
  Company Number: US-GLAXOSMITHKLINE-A0607269A

PATIENT
  Age: 63 Year
  Sex: Female

DRUGS (8)
  1. FLONASE [Suspect]
     Dosage: 1SPR AS REQUIRED
     Route: 045
  2. NORVASC [Suspect]
     Indication: HEART RATE DECREASED
     Dates: start: 20060401, end: 20060406
  3. TENORMIN [Concomitant]
  4. ATENOLOL [Concomitant]
  5. CLONIDINE [Concomitant]
  6. HYDROCHLOROTHIAZIDE [Concomitant]
  7. FOSAMAX [Concomitant]
  8. NORVASC [Concomitant]

REACTIONS (1)
  - BLEPHAROSPASM [None]
